FAERS Safety Report 10367417 (Version 1)
Quarter: 2014Q3

REPORT INFORMATION
  Report Type: Spontaneous
  Country: BR (occurrence: BR)
  Receive Date: 20140807
  Receipt Date: 20140807
  Transmission Date: 20150326
  Serious: Yes (Hospitalization)
  Sender: FDA-Public Use
  Company Number: BR-ROXANE LABORATORIES, INC.-2014-RO-01181RO

PATIENT
  Age: 33 Year
  Sex: Male

DRUGS (2)
  1. PREDNISONE. [Suspect]
     Active Substance: PREDNISONE
     Indication: POLYMYOSITIS
     Dosage: 40 MG
     Route: 065
  2. METHOTREXATE [Suspect]
     Active Substance: METHOTREXATE
     Indication: POLYMYOSITIS
     Route: 065

REACTIONS (2)
  - Cutaneous tuberculosis [Recovered/Resolved]
  - Pulmonary tuberculosis [Unknown]
